FAERS Safety Report 6207991-7 (Version None)
Quarter: 2009Q2

REPORT INFORMATION
  Report Type: 
  Country: None (occurrence: None)
  Receive Date: 20090529
  Receipt Date: 20090424
  Transmission Date: 20091009
  Serious: No
  Sender: FDA-Public Use
  Company Number: A0770702A

PATIENT
  Sex: Male

DRUGS (2)
  1. VENTOLIN [Suspect]
     Indication: DRUG USE FOR UNKNOWN INDICATION
     Dosage: 2PUFF AS REQUIRED
     Route: 055
     Dates: start: 20081101
  2. ANTIBIOTICS [Concomitant]

REACTIONS (2)
  - DRUG INEFFECTIVE [None]
  - PRODUCT QUALITY ISSUE [None]
